FAERS Safety Report 14964617 (Version 1)
Quarter: 2018Q2

REPORT INFORMATION
  Report Type: Spontaneous
  Country: IT (occurrence: IT)
  Receive Date: 20180601
  Receipt Date: 20180601
  Transmission Date: 20180711
  Serious: Yes (Other)
  Sender: FDA-Public Use
  Company Number: IT-MYLANLABS-2018M1036443

PATIENT
  Age: 52 Year
  Sex: Female

DRUGS (1)
  1. CARBAMAZEPINE. [Suspect]
     Active Substance: CARBAMAZEPINE
     Indication: EPILEPSY
     Dosage: THREE TIMES A DAY; RECEIVING SINCE THE AGE OF 32 YEARS
     Route: 065

REACTIONS (2)
  - Vasculitis necrotising [Recovered/Resolved]
  - Hypersensitivity vasculitis [Recovered/Resolved]
